FAERS Safety Report 13295202 (Version 3)
Quarter: 2017Q1

REPORT INFORMATION
  Report Type: Report from Study
  Country: US (occurrence: US)
  Receive Date: 20170303
  Receipt Date: 20170330
  Transmission Date: 20170428
  Serious: Yes (Hospitalization, Disabling, Other)
  Sender: FDA-Public Use
  Company Number: US-009507513-1702USA010244

PATIENT
  Sex: Female

DRUGS (1)
  1. CRIXIVAN [Suspect]
     Active Substance: INDINAVIR SULFATE
     Dosage: TAKE 1 EVERY 12 HOURS
     Route: 048

REACTIONS (3)
  - Diabetic coma [Unknown]
  - Adverse event [Unknown]
  - Malaise [Unknown]
